FAERS Safety Report 6822069-7 (Version None)
Quarter: 2010Q3

REPORT INFORMATION
  Report Type: 
  Country: None (occurrence: None)
  Receive Date: 20100708
  Receipt Date: 20100623
  Transmission Date: 20110219
  Serious: Yes (Hospitalization)
  Sender: FDA-Public Use
  Company Number: PL-ELI_LILLY_AND_COMPANY-PL201004008555

PATIENT
  Sex: Female
  Weight: 55.3 kg

DRUGS (7)
  1. PEMETREXED [Suspect]
     Indication: NON-SMALL CELL LUNG CANCER
     Dosage: 800 MG, OTHER
     Route: 042
     Dates: start: 20100416
  2. CISPLATIN [Suspect]
     Indication: NON-SMALL CELL LUNG CANCER
     Dosage: 120 MG, OTHER
     Route: 042
     Dates: start: 20100416
  3. FENTANYL [Concomitant]
     Dosage: UNK, UNK
     Dates: start: 20100409
  4. ENARENAL [Concomitant]
     Dosage: 10 MG, 2/D
     Route: 048
     Dates: start: 20100415
  5. NYSTATIN [Concomitant]
     Indication: CANDIDIASIS
     Dosage: UNK, 3/D
     Route: 048
     Dates: start: 20100421, end: 20100423
  6. ONDANSETRON [Concomitant]
     Indication: NAUSEA
     Dates: start: 20100417
  7. DEXAMETHASONE [Concomitant]
     Indication: NAUSEA
     Dates: start: 20100417

REACTIONS (2)
  - NAUSEA [None]
  - VOMITING [None]
